FAERS Safety Report 12962840 (Version 1)
Quarter: 2016Q4

REPORT INFORMATION
  Report Type: Spontaneous
  Country: RO (occurrence: RO)
  Receive Date: 20161121
  Receipt Date: 20161121
  Transmission Date: 20170207
  Serious: Yes (Hospitalization)
  Sender: FDA-Public Use
  Company Number: RO-SCIEGEN PHARMACEUTICALS INC-2016SCILIT00543

PATIENT
  Age: 71 Year

DRUGS (2)
  1. METFORMIN HYDROCHLORIDE TABLETS, USP [Suspect]
     Active Substance: METFORMIN HYDROCHLORIDE
     Indication: TYPE 2 DIABETES MELLITUS
     Dosage: UNK
     Route: 065
  2. METFORMIN HYDROCHLORIDE TABLETS, USP [Suspect]
     Active Substance: METFORMIN HYDROCHLORIDE
     Dosage: 1000 MG X 3/DAY
     Route: 048

REACTIONS (10)
  - Diabetic retinopathy [Unknown]
  - Essential hypertension [Unknown]
  - Haematocrit decreased [Unknown]
  - Peripheral venous disease [Unknown]
  - Prescribed overdose [Unknown]
  - Diabetic neuropathy [Unknown]
  - Vitamin B12 decreased [Unknown]
  - Haemoglobin decreased [Unknown]
  - Off label use [None]
  - Central obesity [Unknown]
